FAERS Safety Report 7783454-2 (Version None)
Quarter: 2011Q3

REPORT INFORMATION
  Report Type: 
  Country: None (occurrence: None)
  Receive Date: 20110928
  Receipt Date: 20110928
  Transmission Date: 20111222
  Serious: Yes (Life-Threatening, Hospitalization, Disabling, Other)
  Sender: FDA-Public Use
  Company Number: None

PATIENT
  Age: 62 Year
  Sex: Male
  Weight: 83.914 kg

DRUGS (6)
  1. LISINOPRIL [Concomitant]
     Route: 048
  2. NORVASC [Concomitant]
     Route: 048
  3. ROSUVASTATIN [Concomitant]
     Route: 048
  4. COUMADIN [Concomitant]
     Route: 048
  5. FENOFIBRIC ACID [Concomitant]
     Route: 048
  6. GEMFIBROZIL [Suspect]
     Indication: BLOOD TRIGLYCERIDES INCREASED
     Dosage: 600 MG
     Route: 048
     Dates: start: 20090315, end: 20110907

REACTIONS (3)
  - CHOLELITHIASIS [None]
  - HAEMORRHAGE [None]
  - BLOOD CHOLESTEROL INCREASED [None]
